FAERS Safety Report 5276153-2 (Version None)
Quarter: 2007Q1

REPORT INFORMATION
  Report Type: 
  Country: None (occurrence: None)
  Receive Date: 20070326
  Receipt Date: 20070316
  Transmission Date: 20070707
  Serious: Yes (Hospitalization)
  Sender: FDA-Public Use
  Company Number: US-AMGEN-US215392

PATIENT
  Sex: Male

DRUGS (14)
  1. AMG 706 [Suspect]
     Indication: METASTATIC NEOPLASM
     Route: 048
     Dates: start: 20060922
  2. PANITUMUMAB [Suspect]
     Indication: METASTATIC NEOPLASM
     Route: 042
     Dates: start: 20060922, end: 20070109
  3. PANITUMUMAB [Suspect]
     Route: 042
     Dates: start: 20070130
  4. CISPLATIN [Suspect]
     Route: 042
  5. GEMCITABINE [Concomitant]
     Route: 042
  6. METFORMIN HCL [Concomitant]
     Route: 048
  7. NEXIUM [Concomitant]
     Route: 048
  8. HYDROMORPHONE HCL [Concomitant]
     Route: 048
  9. LORAZEPAM [Concomitant]
     Route: 048
  10. AMBIEN [Concomitant]
     Route: 048
  11. OXYCONTIN [Concomitant]
     Route: 048
  12. MEGACE [Concomitant]
     Route: 048
  13. DECADRON [Concomitant]
  14. BACLOFEN [Concomitant]
     Route: 048

REACTIONS (2)
  - DEEP VEIN THROMBOSIS [None]
  - PULMONARY EMBOLISM [None]
